FAERS Safety Report 16174563 (Version 6)
Quarter: 2021Q1

REPORT INFORMATION
  Report Type: Report from Study
  Country: US (occurrence: US)
  Receive Date: 20190409
  Receipt Date: 20210312
  Transmission Date: 20210419
  Serious: Yes (Life-Threatening, Hospitalization, Other)
  Sender: FDA-Public Use
  Company Number: US-SA-2019SA092049

PATIENT
  Age: 65 Year
  Sex: Female

DRUGS (2)
  1. ALEMTUZUMAB [Suspect]
     Active Substance: ALEMTUZUMAB
     Dosage: 12 MG, QD
     Route: 041
     Dates: start: 20171106, end: 20171110
  2. ALEMTUZUMAB [Suspect]
     Active Substance: ALEMTUZUMAB
     Indication: MULTIPLE SCLEROSIS
     Dosage: 12 MG, QD
     Route: 041
     Dates: start: 20181112, end: 20181114

REACTIONS (23)
  - Loss of consciousness [Unknown]
  - Headache [Not Recovered/Not Resolved]
  - Abdominal pain lower [Not Recovered/Not Resolved]
  - Speech disorder [Not Recovered/Not Resolved]
  - Malaise [Not Recovered/Not Resolved]
  - Asthenia [Not Recovered/Not Resolved]
  - Blood pressure abnormal [Unknown]
  - Blood pressure increased [Not Recovered/Not Resolved]
  - Mobility decreased [Not Recovered/Not Resolved]
  - CSF shunt operation [Recovered/Resolved]
  - Bacterial colitis [Unknown]
  - Vomiting [Recovered/Resolved]
  - Surgery [Unknown]
  - Hydrocephalus [Unknown]
  - Condition aggravated [Unknown]
  - Intracranial pressure increased [Unknown]
  - Neuropathy peripheral [Not Recovered/Not Resolved]
  - Memory impairment [Unknown]
  - Salmonellosis [Not Recovered/Not Resolved]
  - Electrolyte depletion [Unknown]
  - Illness [Not Recovered/Not Resolved]
  - Diarrhoea [Recovered/Resolved]
  - Sciatica [Unknown]

NARRATIVE: CASE EVENT DATE: 201901
